FAERS Safety Report 12897141 (Version 1)
Quarter: 2016Q4

REPORT INFORMATION
  Report Type: Spontaneous
  Country: US (occurrence: US)
  Receive Date: 20161029
  Receipt Date: 20161029
  Transmission Date: 20170207
  Serious: Yes (Hospitalization, Congenital Anomaly, Other)
  Sender: FDA-Public Use
  Company Number: None

PATIENT
  Age: 3 Year
  Sex: Male

DRUGS (1)
  1. TUMMY CARE MAX [Suspect]
     Active Substance: CALCIUM CARBONATE\MAGNESIUM HYDROXIDE\SODIUM BICARBONATE
     Indication: GASTROOESOPHAGEAL REFLUX DISEASE
     Route: 048

REACTIONS (4)
  - Pneumonia aspiration [None]
  - Product preparation error [None]
  - Gastrooesophageal reflux disease [None]
  - Vomiting [None]

NARRATIVE: CASE EVENT DATE: 20161028
